FAERS Safety Report 16238094 (Version 4)
Quarter: 2021Q1

REPORT INFORMATION
  Report Type: Spontaneous
  Country: US (occurrence: US)
  Receive Date: 20190425
  Receipt Date: 20210225
  Transmission Date: 20210419
  Serious: Yes (Other)
  Sender: FDA-Public Use
  Company Number: US-PFIZER INC-2019173002

PATIENT
  Age: 80 Year
  Sex: Male
  Weight: 97.9 kg

DRUGS (1)
  1. XELJANZ XR [Suspect]
     Active Substance: TOFACITINIB CITRATE
     Dosage: 11 MG, UNK

REACTIONS (5)
  - Pain [Unknown]
  - Headache [Unknown]
  - Brain neoplasm [Unknown]
  - Memory impairment [Unknown]
  - Feeling abnormal [Unknown]
